FAERS Safety Report 17468204 (Version 1)
Quarter: 2020Q1

REPORT INFORMATION
  Report Type: Report from Study
  Country: US (occurrence: US)
  Receive Date: 20200227
  Receipt Date: 20200227
  Transmission Date: 20200409
  Serious: Yes (Other)
  Sender: FDA-Public Use
  Company Number: US-PFIZER INC-2020084147

PATIENT
  Age: 73 Year
  Sex: Male

DRUGS (1)
  1. FLUDARABINE PHOSPHATE. [Suspect]
     Active Substance: FLUDARABINE PHOSPHATE
     Indication: CHRONIC LYMPHOCYTIC LEUKAEMIA
     Dosage: 25 MG/M2, CYCLIC (25 MG/M^2/D X 5, 3 CYCLES)

REACTIONS (3)
  - Dysdiadochokinesis [Unknown]
  - Seizure [Recovered/Resolved]
  - Hemiplegia [Recovered/Resolved]
